FAERS Safety Report 17736279 (Version 1)
Quarter: 2020Q2

REPORT INFORMATION
  Report Type: Spontaneous
  Country: DE (occurrence: RU)
  Receive Date: 20200501
  Receipt Date: 20200501
  Transmission Date: 20200714
  Serious: Yes (Other)
  Sender: FDA-Public Use
  Company Number: RU-ELI_LILLY_AND_COMPANY-RU202004011886

PATIENT
  Age: 62 Year
  Sex: Male

DRUGS (4)
  1. CISPLATIN. [Concomitant]
     Active Substance: CISPLATIN
     Indication: GINGIVAL CANCER
     Dosage: 100 MG/M2, UNK
     Dates: start: 20160224, end: 20160517
  2. 5 FU [Concomitant]
     Active Substance: FLUOROURACIL
     Indication: GINGIVAL CANCER
     Dosage: 4000 MG/M2, UNK
     Dates: start: 20160224, end: 20160517
  3. ERBITUX [Suspect]
     Active Substance: CETUXIMAB
     Indication: GINGIVAL CANCER
     Dosage: 400 MG/M2, UNK
     Route: 065
     Dates: start: 20160224
  4. ERBITUX [Suspect]
     Active Substance: CETUXIMAB
     Dosage: 250 MG/M2, WEEKLY (1/W)
     Route: 065

REACTIONS (1)
  - Neutropenia [Unknown]

NARRATIVE: CASE EVENT DATE: 201605
